FAERS Safety Report 8422496-0 (Version None)
Quarter: 2012Q2

REPORT INFORMATION
  Report Type: 
  Country: None (occurrence: None)
  Receive Date: 20120608
  Receipt Date: 20120525
  Transmission Date: 20120825
  Serious: Yes (Congenital Anomaly)
  Sender: FDA-Public Use
  Company Number: GB-WATSON-2012-09431

PATIENT
  Sex: Male
  Weight: 3.3 kg

DRUGS (4)
  1. VALPROATE SODIUM [Suspect]
     Indication: EPILEPSY
     Dosage: 1 G, DAILY, INDICATION: THE MOTHER WAS TAKING THE SUSPECT DRUG FOR EPILEPSY.
     Route: 064
  2. LAMOTRIGINE [Suspect]
     Indication: EPILEPSY
     Dosage: 100 MG, DAILY, INDICATION: THE MOTHER WAS TAKING THE SUSPECT DRUG FOR EPILEPSY.
     Route: 064
  3. PROCHLORPERAZINE [Concomitant]
     Indication: PRODUCT USED FOR UNKNOWN INDICATION
     Route: 064
  4. CLOBAZAM [Suspect]
     Indication: EPILEPSY
     Dosage: 10 MG, DAILY, INDICATION: THE MOTHER WAS TAKING THE SUSPECT DRUG, FOR EPILEPSY.
     Route: 064

REACTIONS (6)
  - LIMB REDUCTION DEFECT [None]
  - JOINT DISLOCATION [None]
  - HYPOSPADIAS [None]
  - WRIST DEFORMITY [None]
  - HAND DEFORMITY [None]
  - CONGENITAL ANOMALY [None]
